FAERS Safety Report 12147202 (Version 2)
Quarter: 2016Q2

REPORT INFORMATION
  Report Type: Other
  Country: FR (occurrence: FR)
  Receive Date: 20160304
  Receipt Date: 20160603
  Transmission Date: 20160815
  Serious: Yes (Life-Threatening, Hospitalization)
  Sender: FDA-Public Use
  Company Number: FR-VALIDUS PHARMACEUTICALS LLC-FR-2016VAL000247

PATIENT
  Age: 69 Year
  Sex: Male

DRUGS (5)
  1. FUROSEMIDE. [Suspect]
     Active Substance: FUROSEMIDE
     Indication: CARDIAC FAILURE
     Dosage: 40 MG, THREE TIMES A DAY
     Route: 042
     Dates: start: 20160104, end: 20160129
  2. CEFEPIME [Suspect]
     Active Substance: CEFEPIME HYDROCHLORIDE
     Indication: SEPTIC SHOCK
     Dosage: 2 G, THREE TIMES A DAY
     Route: 042
     Dates: start: 20160118, end: 20160123
  3. HEPARIN SODIUM. [Concomitant]
     Active Substance: HEPARIN SODIUM
     Indication: ATRIAL FIBRILLATION
     Dosage: UNK
     Dates: start: 20160105, end: 20160209
  4. GENTAMICIN                         /00047102/ [Suspect]
     Active Substance: GENTAMICIN
     Indication: SEPTIC SHOCK
     Dosage: UNK
     Route: 042
     Dates: start: 20160118, end: 20160120
  5. CORDARONE [Concomitant]
     Active Substance: AMIODARONE HYDROCHLORIDE
     Indication: ATRIAL FIBRILLATION
     Dosage: UNK

REACTIONS (5)
  - Encephalopathy [Recovering/Resolving]
  - Myoclonus [Recovered/Resolved]
  - Thrombocytopenia [Recovered/Resolved]
  - Somnolence [Recovered/Resolved]
  - Acute kidney injury [Recovering/Resolving]

NARRATIVE: CASE EVENT DATE: 20160122
